FAERS Safety Report 13298039 (Version 7)
Quarter: 2019Q1

REPORT INFORMATION
  Report Type: Report from Study
  Country: US (occurrence: US)
  Receive Date: 20170306
  Receipt Date: 20190130
  Transmission Date: 20190417
  Serious: Yes (Other)
  Sender: FDA-Public Use
  Company Number: US-EMD SERONO-E2B_80060737

PATIENT
  Sex: Female

DRUGS (4)
  1. METHADONE [Concomitant]
     Active Substance: METHADONE HYDROCHLORIDE
     Indication: CENTRAL PAIN SYNDROME
  2. REBIF [Suspect]
     Active Substance: INTERFERON BETA-1A
     Indication: MULTIPLE SCLEROSIS
     Route: 058
     Dates: start: 20160721, end: 20170217
  3. REBIF [Suspect]
     Active Substance: INTERFERON BETA-1A
     Route: 058
     Dates: start: 201703
  4. REBIF [Suspect]
     Active Substance: INTERFERON BETA-1A
     Route: 058

REACTIONS (13)
  - Fatigue [Not Recovered/Not Resolved]
  - Anxiety [Unknown]
  - Body temperature increased [Unknown]
  - Memory impairment [Not Recovered/Not Resolved]
  - Narcolepsy [Unknown]
  - Product dose omission [Unknown]
  - Craniocerebral injury [Unknown]
  - Sleep apnoea syndrome [Unknown]
  - Post-traumatic stress disorder [Unknown]
  - Seizure [Recovered/Resolved]
  - Stress [Not Recovered/Not Resolved]
  - Malaise [Unknown]
  - Asthenia [Not Recovered/Not Resolved]
